FAERS Safety Report 7608451-9 (Version None)
Quarter: 2011Q3

REPORT INFORMATION
  Report Type: 
  Country: None (occurrence: None)
  Receive Date: 20110714
  Receipt Date: 20110704
  Transmission Date: 20111222
  Serious: Yes (Other)
  Sender: FDA-Public Use
  Company Number: GB-ELI_LILLY_AND_COMPANY-GB201107000474

PATIENT
  Age: 35 Year
  Sex: Female
  Weight: 66 kg

DRUGS (1)
  1. CYMBALTA [Suspect]
     Indication: FACIAL PAIN
     Dosage: 30 MG, UNKNOWN
     Route: 048
     Dates: start: 20110615, end: 20110616

REACTIONS (4)
  - MYDRIASIS [None]
  - VISION BLURRED [None]
  - OFF LABEL USE [None]
  - PHOTOPSIA [None]
